FAERS Safety Report 10407005 (Version 3)
Quarter: 2014Q3

REPORT INFORMATION
  Report Type: Spontaneous
  Country: US (occurrence: US)
  Receive Date: 20140825
  Receipt Date: 20140915
  Transmission Date: 20150326
  Serious: Yes (Other)
  Sender: FDA-Public Use
  Company Number: US-BAYER-2014-126521

PATIENT
  Sex: Female

DRUGS (1)
  1. BETASERON [Suspect]
     Active Substance: INTERFERON BETA-1B
     Dosage: UNK
     Dates: start: 1998, end: 201408

REACTIONS (6)
  - Urinary tract disorder [None]
  - Multiple sclerosis [None]
  - Memory impairment [None]
  - Drug ineffective [None]
  - Balance disorder [None]
  - Diplopia [None]
